FAERS Safety Report 16156720 (Version 1)
Quarter: 2019Q2

REPORT INFORMATION
  Report Type: Spontaneous
  Country: US (occurrence: US)
  Receive Date: 20190404
  Receipt Date: 20190404
  Transmission Date: 20190711
  Serious: No
  Sender: FDA-Public Use
  Company Number: US-TEVA-2019-US-1025765

PATIENT
  Age: 58 Year
  Sex: Female

DRUGS (1)
  1. SPIRONOLACTONE ACTAVIS [Suspect]
     Active Substance: SPIRONOLACTONE
     Indication: ACNE
     Dates: start: 20180421, end: 20180422

REACTIONS (1)
  - Tinnitus [Unknown]
